FAERS Safety Report 5877136-1 (Version None)
Quarter: 2008Q3

REPORT INFORMATION
  Report Type: 
  Country: None (occurrence: None)
  Receive Date: 20080910
  Receipt Date: 20080905
  Transmission Date: 20090109
  Serious: Yes (Hospitalization)
  Sender: FDA-Public Use
  Company Number: US-BRISTOL-MYERS SQUIBB COMPANY-14325682

PATIENT
  Age: 52 Year
  Sex: Male
  Weight: 87 kg

DRUGS (2)
  1. SPRYCEL [Suspect]
     Indication: ADENOCARCINOMA PANCREAS
     Dosage: LAST DOSE ADMINISTERED 07-APR-2008
     Route: 048
     Dates: start: 20080401, end: 20080407
  2. MORPHINE [Suspect]

REACTIONS (7)
  - ABDOMINAL PAIN [None]
  - BILIARY TRACT INFECTION [None]
  - CONSTIPATION [None]
  - DEHYDRATION [None]
  - DEPRESSION [None]
  - NAUSEA [None]
  - VOMITING [None]
